FAERS Safety Report 26190905 (Version 1)
Quarter: 2025Q4

REPORT INFORMATION
  Report Type: Spontaneous
  Country: EU (occurrence: EU)
  Receive Date: 20251223
  Receipt Date: 20251223
  Transmission Date: 20260117
  Serious: Yes (Other)
  Sender: TEVA
  Company Number: None

PATIENT
  Age: 6 Month
  Sex: Male
  Weight: 7 kg

DRUGS (4)
  1. ENALAPRIL [Suspect]
     Active Substance: ENALAPRIL
     Indication: Product used for unknown indication
     Dosage: C/24 H; ENALAPRIL (2142A)
     Route: 048
     Dates: start: 20251129, end: 20251130
  2. SUERORAL HIPOSODICO [Concomitant]
     Indication: Nausea
     Dosage: 1.0 SACHETS C/24 H; 5 SACHETS
     Route: 048
     Dates: start: 20251128, end: 20251129
  3. OMEPRAZOLE [Concomitant]
     Active Substance: OMEPRAZOLE
     Indication: Gastrooesophageal reflux disease
     Dosage: 7.6 MG C/24 H; OMEPRAZOL (2141A)
     Route: 048
     Dates: start: 20251128
  4. VITAMIN D3 [Concomitant]
     Active Substance: CHOLECALCIFEROL
     Indication: Vitamin supplementation
     Dosage: 400.0 IU OF; VITAMIN D3 KERN PHARMA 2,000 IU/ML, 1 BOTTLE OF 30 ML + 1 ORAL SYRINGE OF 1 ML
     Route: 048
     Dates: start: 20250607

REACTIONS (3)
  - Decreased appetite [Recovered/Resolved]
  - Product dispensing error [Recovered/Resolved]
  - Restlessness [Recovered/Resolved]

NARRATIVE: CASE EVENT DATE: 20251130
